FAERS Safety Report 9832783 (Version 1)
Quarter: 2014Q1

REPORT INFORMATION
  Report Type: Spontaneous
  Country: CA (occurrence: CA)
  Receive Date: 20140121
  Receipt Date: 20140121
  Transmission Date: 20141002
  Serious: Yes (Death)
  Sender: FDA-Public Use
  Company Number: CA-GLAXOSMITHKLINE-A1057336A

PATIENT
  Age: 71 Year
  Sex: Male

DRUGS (1)
  1. REVOLADE [Suspect]
     Indication: IMMUNE THROMBOCYTOPENIC PURPURA
     Dosage: 25MG PER DAY
     Route: 065

REACTIONS (1)
  - Death [Fatal]
